FAERS Safety Report 6806531-9 (Version None)
Quarter: 2010Q2

REPORT INFORMATION
  Report Type: 
  Country: None (occurrence: None)
  Receive Date: 20100629
  Receipt Date: 20080313
  Transmission Date: 20101027
  Serious: No
  Sender: FDA-Public Use
  Company Number: US-PFIZER INC-2008024260

PATIENT
  Sex: Female

DRUGS (2)
  1. XANAX [Suspect]
     Route: 048
  2. ROZEREM [Suspect]
     Route: 048
     Dates: start: 20080304

REACTIONS (4)
  - FATIGUE [None]
  - INITIAL INSOMNIA [None]
  - INSOMNIA [None]
  - TERMINAL INSOMNIA [None]
